FAERS Safety Report 4519122-X (Version None)
Quarter: 2004Q4

REPORT INFORMATION
  Report Type: 
  Country: None (occurrence: None)
  Receive Date: 20041201
  Receipt Date: 20041116
  Transmission Date: 20050328
  Serious: Yes (Hospitalization)
  Sender: FDA-Public Use
  Company Number: 2004AP05458

PATIENT
  Age: 57 Year
  Sex: Male

DRUGS (4)
  1. IRESSA [Suspect]
     Indication: LUNG NEOPLASM MALIGNANT
     Dosage: 250 MG DAILY PO
     Route: 048
     Dates: start: 20040831, end: 20040920
  2. IRESSA [Suspect]
     Indication: LUNG NEOPLASM MALIGNANT
     Dosage: 250 MG DAILY PO
     Route: 048
     Dates: start: 20041018, end: 20041021
  3. CARBOPLATIN [Concomitant]
  4. PACLITAXEL [Concomitant]

REACTIONS (7)
  - CARDIAC FAILURE [None]
  - DYSPNOEA [None]
  - EOSINOPHIL COUNT INCREASED [None]
  - GENERALISED OEDEMA [None]
  - HYPERSENSITIVITY [None]
  - PLEURAL EFFUSION [None]
  - PYREXIA [None]
